FAERS Safety Report 4621184-6 (Version None)
Quarter: 2005Q1

REPORT INFORMATION
  Report Type: 
  Country: None (occurrence: None)
  Receive Date: 20050328
  Receipt Date: 20050314
  Transmission Date: 20050727
  Serious: Yes (Hospitalization)
  Sender: FDA-Public Use
  Company Number: 2004067043

PATIENT
  Age: 85 Year
  Sex: Female

DRUGS (13)
  1. AMLODIPINE [Suspect]
     Indication: ILL-DEFINED DISORDER
     Dosage: 5 MG (5 MG, 1 IN 1 D), ORAL
     Route: 048
     Dates: start: 20040731
  2. LOPERAMIDE [Suspect]
     Indication: ILL-DEFINED DISORDER
     Dosage: ORAL
     Route: 048
     Dates: start: 20040729
  3. BLOPRESS PLUS (CANDESARTAN CILEXETIL, HYDROCHLOROTHIAZIDE) [Suspect]
     Indication: ILL-DEFINED DISORDER
     Dosage: 8 MG (8 MG, 1 IN 1 D), ORAL
     Route: 048
     Dates: start: 20040729, end: 20040802
  4. TETRAZEPAM (TETRAZEPAM) [Suspect]
     Indication: ILL-DEFINED DISORDER
     Dosage: 50 MG (50 MG, 1 IN 1 D), ORAL
     Route: 048
     Dates: start: 20040731
  5. PREDNISOLONE SODIUM SULFOBENZOATE (PREDNISOLONE SODIUM SULFOBENZOATE) [Suspect]
     Indication: ILL-DEFINED DISORDER
     Dosage: 40 MG (20 MG, 2 IN 1 D), ORAL
     Route: 048
     Dates: start: 20040731
  6. PANTOPRAZOLE (PANTOPRAZOLE) [Suspect]
     Indication: ILL-DEFINED DISORDER
     Dosage: 20 MG (20 MG, 1 IN 1 D), ORAL
     Route: 048
     Dates: start: 20040731
  7. URAPIDIL (URAPIDIL) [Suspect]
     Indication: ILL-DEFINED DISORDER
     Dosage: 60 MG (30 MG, 2 IN 1 D), ORAL
     Route: 048
     Dates: start: 20040729
  8. CLARITHROMYCIN [Suspect]
     Indication: ILL-DEFINED DISORDER
     Dosage: 4 IN D, ORAL
     Route: 048
     Dates: start: 20040731
  9. ACETAMINOPHEN [Suspect]
     Indication: ILL-DEFINED DISORDER
     Dosage: ORAL
     Route: 048
     Dates: start: 20040731
  10. FLECAINIDE ACETATE [Suspect]
     Indication: ILL-DEFINED DISORDER
     Dosage: 2 IN 1 D
     Dates: start: 20040709
  11. SOTALOL HCL [Suspect]
     Indication: ILL-DEFINED DISORDER
     Dosage: 1 IN 1 D, ORAL
     Route: 048
     Dates: start: 20040709
  12. LEVOTHYROXINE SODIUM [Suspect]
     Indication: ILL-DEFINED DISORDER
     Dosage: 75 MG, 1 IN 2 D, ORAL
     Route: 048
  13. CIBACALCINE (CALCITONIN, HUMAN) [Suspect]
     Indication: ILL-DEFINED DISORDER
     Dosage: 0.5 MG (0.5 MG, 1 IN 1 D), ORAL
     Route: 048
     Dates: start: 20040727

REACTIONS (2)
  - DEPRESSED LEVEL OF CONSCIOUSNESS [None]
  - HYPONATRAEMIA [None]
